FAERS Safety Report 24037394 (Version 3)
Quarter: 2024Q3

REPORT INFORMATION
  Report Type: Spontaneous
  Country: US (occurrence: US)
  Receive Date: 20240702
  Receipt Date: 20240711
  Transmission Date: 20241017
  Serious: Yes (Hospitalization)
  Sender: AMGEN
  Company Number: US-AMGEN-USASP2024120607

PATIENT
  Sex: Female

DRUGS (3)
  1. IMDELLTRA [Suspect]
     Active Substance: TARLATAMAB-DLLE
     Indication: Small cell lung cancer
     Dosage: UNK
     Route: 065
     Dates: start: 20240617, end: 20240617
  2. IMDELLTRA [Suspect]
     Active Substance: TARLATAMAB-DLLE
     Dosage: 1 MILLIGRAM (CYCLE 1 DAY 8)
     Route: 065
     Dates: start: 20240624
  3. DEXAMETHASONE [Concomitant]
     Active Substance: DEXAMETHASONE
     Indication: Cough
     Dosage: UNK
     Route: 065
     Dates: start: 20240617

REACTIONS (10)
  - Blood pressure abnormal [Not Recovered/Not Resolved]
  - Muscle spasms [Unknown]
  - Back pain [Recovered/Resolved]
  - Cough [Unknown]
  - Aspartate aminotransferase increased [Unknown]
  - Musculoskeletal pain [Unknown]
  - Nausea [Recovered/Resolved]
  - Pyrexia [Unknown]
  - Incorrect dose administered [Unknown]
  - Product prescribing error [Unknown]

NARRATIVE: CASE EVENT DATE: 20240601
